APPROVED DRUG PRODUCT: MODAFINIL
Active Ingredient: MODAFINIL
Strength: 200MG
Dosage Form/Route: TABLET;ORAL
Application: A202566 | Product #002 | TE Code: AB
Applicant: AUROBINDO PHARMA LTD
Approved: Sep 27, 2012 | RLD: No | RS: No | Type: RX